FAERS Safety Report 7547032 (Version 2)
Quarter: 2012Q4

REPORT INFORMATION
  Report Type: 
  Country: US (occurrence: US)
  Receive Date: 20100819
  Receipt Date: 20121029
  Transmission Date: 20130627
  Serious: Yes (Hospitalization, Other)
  Sender: FDA-Public Use
  Company Number: US-ROCHE-702758

PATIENT
  Age: 13 Year
  Sex: Female
  Weight: 58.1 kg

DRUGS (7)
  1. ACCUTANE [Suspect]
     Indication: ACNE CYSTIC
     Route: 065
  2. ACCUTANE [Suspect]
     Dosage: ALTERNATING DOSES
     Route: 065
  3. ACCUTANE [Suspect]
     Dosage: STOPPED FOR A WEEK
     Route: 065
     Dates: start: 19990329, end: 19990510
  4. ACCUTANE [Suspect]
     Route: 065
  5. ACCUTANE [Suspect]
     Route: 065
  6. ACCUTANE [Suspect]
     Route: 065
  7. ACCUTANE [Suspect]
     Route: 065

REACTIONS (12)
  - Crohn^s disease [Unknown]
  - Small intestinal obstruction [Unknown]
  - Depression [Unknown]
  - Inflammatory bowel disease [Unknown]
  - Irritable bowel syndrome [Unknown]
  - Suicidal ideation [Unknown]
  - Colonic fistula [Unknown]
  - Angioedema [Unknown]
  - Dry skin [Unknown]
  - Lip dry [Unknown]
  - Dermatitis contact [Unknown]
  - Dyshidrotic eczema [Unknown]
